FAERS Safety Report 14109338 (Version 10)
Quarter: 2022Q2

REPORT INFORMATION
  Report Type: Report from Study
  Country: AR (occurrence: AR)
  Receive Date: 20171019
  Receipt Date: 20220607
  Transmission Date: 20220721
  Serious: Yes (Life-Threatening, Hospitalization, Other)
  Sender: FDA-Public Use
  Company Number: PHHY2017AR152050

PATIENT
  Age: 67 Year
  Sex: Female

DRUGS (5)
  1. SANDOSTATIN LAR DEPOT [Suspect]
     Active Substance: OCTREOTIDE ACETATE
     Indication: Pituitary tumour benign
     Dosage: 20 MG, QMO (EVERY 28 DAYS)
     Route: 065
     Dates: start: 20150101, end: 20170801
  2. SANDOSTATIN LAR DEPOT [Suspect]
     Active Substance: OCTREOTIDE ACETATE
     Indication: Acromegaly
     Dosage: 20 MG, QMO (EVERY 28 DAYS)
     Route: 065
     Dates: start: 20180419
  3. SANDOSTATIN LAR DEPOT [Suspect]
     Active Substance: OCTREOTIDE ACETATE
     Dosage: 20 MG, QMO (EVERY 28 DAYS)
     Route: 030
     Dates: start: 201805
  4. METFORMIN [Concomitant]
     Active Substance: METFORMIN HYDROCHLORIDE
     Indication: Product used for unknown indication
     Dosage: 750 MG, QD
     Route: 065
  5. AZATHIOPRINE [Concomitant]
     Active Substance: AZATHIOPRINE
     Indication: Product used for unknown indication
     Dosage: UNK
     Route: 065

REACTIONS (35)
  - Pneumonia [Recovering/Resolving]
  - Bronchitis [Recovering/Resolving]
  - Pneumonitis [Unknown]
  - Mycoplasma test positive [Unknown]
  - Respiratory failure [Recovering/Resolving]
  - Renal failure [Unknown]
  - Urinary tract infection [Unknown]
  - Escherichia infection [Unknown]
  - Mitral valve incompetence [Unknown]
  - Left atrial dilatation [Unknown]
  - Diverticulum intestinal [Unknown]
  - Malaise [Unknown]
  - Pulmonary mass [Not Recovered/Not Resolved]
  - Drug-induced liver injury [Not Recovered/Not Resolved]
  - Obliterative bronchiolitis [Not Recovered/Not Resolved]
  - Hallucination, visual [Not Recovered/Not Resolved]
  - Leukocytosis [Unknown]
  - Blood glucose increased [Unknown]
  - Memory impairment [Unknown]
  - Anxiety [Recovering/Resolving]
  - Chest pain [Not Recovered/Not Resolved]
  - Feeling abnormal [Recovering/Resolving]
  - Underdose [Not Recovered/Not Resolved]
  - Adenoma benign [Not Recovered/Not Resolved]
  - Tonsillitis [Not Recovered/Not Resolved]
  - Oxygen consumption decreased [Not Recovered/Not Resolved]
  - Hepatic enzyme increased [Not Recovered/Not Resolved]
  - Dysuria [Not Recovered/Not Resolved]
  - Renal cyst [Not Recovered/Not Resolved]
  - Kidney enlargement [Not Recovered/Not Resolved]
  - Blood pressure fluctuation [Not Recovered/Not Resolved]
  - Visual impairment [Unknown]
  - Fall [Not Recovered/Not Resolved]
  - Product quality issue [Not Recovered/Not Resolved]
  - Needle issue [Not Recovered/Not Resolved]

NARRATIVE: CASE EVENT DATE: 20150101
